FAERS Safety Report 8334334-5 (Version None)
Quarter: 2012Q1

REPORT INFORMATION
  Report Type: 
  Country: None (occurrence: None)
  Receive Date: 20120329
  Receipt Date: 20110509
  Transmission Date: 20120608
  Serious: Yes (Other)
  Sender: FDA-Public Use
  Company Number: WAES 1105USA01474

PATIENT
  Age: 68 Year
  Sex: Female
  Weight: 75.7507 kg

DRUGS (4)
  1. CYCLOPHOSPHAMIDE [Concomitant]
  2. FOSAPREPITANT DIMEGLUMINE [Suspect]
     Indication: CHEMOTHERAPY
     Dosage: 150 MG/1X/IV
     Route: 042
     Dates: start: 20110307, end: 20110509
  3. FOSAPREPITANT DIMEGLUMINE [Suspect]
     Indication: PROPHYLAXIS
     Dosage: 150 MG/1X/IV
     Route: 042
     Dates: start: 20110307, end: 20110509
  4. NEULASTA [Concomitant]

REACTIONS (1)
  - RASH [None]
